FAERS Safety Report 8202845-9 (Version None)
Quarter: 2012Q1

REPORT INFORMATION
  Report Type: 
  Country: None (occurrence: None)
  Receive Date: 20120312
  Receipt Date: 20120312
  Transmission Date: 20120608
  Serious: Yes (Other)
  Sender: FDA-Public Use
  Company Number: None

PATIENT
  Age: 73 Year
  Sex: Female
  Weight: 94.8 kg

DRUGS (2)
  1. FOSPHENYTOIN [Suspect]
     Indication: STATUS EPILEPTICUS
     Dosage: 1275MG
     Route: 042
     Dates: start: 20120213, end: 20120213
  2. FOSPHENYTOIN [Concomitant]
     Dosage: 1275MG
     Route: 042
     Dates: start: 20120213, end: 20120213

REACTIONS (3)
  - BRADYCARDIA [None]
  - ATRIOVENTRICULAR BLOCK SECOND DEGREE [None]
  - HYPOTENSION [None]
